FAERS Safety Report 18660686 (Version 1)
Quarter: 2020Q4

REPORT INFORMATION
  Report Type: Report from Study
  Country: None (occurrence: US)
  Receive Date: 20201223
  Receipt Date: 20201223
  Transmission Date: 20210114
  Serious: Yes (Other)
  Sender: FDA-Public Use
  Company Number: US-ABBVIE-20K-163-3701054-00

PATIENT
  Sex: Male

DRUGS (1)
  1. HUMIRA [Suspect]
     Active Substance: ADALIMUMAB
     Indication: PSORIASIS
     Dosage: CITRATE FREE
     Route: 058

REACTIONS (7)
  - Neck injury [Unknown]
  - Head injury [Unknown]
  - Tooth disorder [Unknown]
  - Fall [Unknown]
  - Pain [Recovering/Resolving]
  - Cyst [Recovered/Resolved]
  - Gastrooesophageal reflux disease [Not Recovered/Not Resolved]
